FAERS Safety Report 22196987 (Version 2)
Quarter: 2023Q4

REPORT INFORMATION
  Report Type: Spontaneous
  Country: CA (occurrence: CA)
  Receive Date: 20230411
  Receipt Date: 20231019
  Transmission Date: 20240109
  Serious: Yes (Other)
  Sender: FDA-Public Use
  Company Number: CA-Covis Pharma Europe B.V.-2023COV00771

PATIENT
  Sex: Male

DRUGS (3)
  1. ALVESCO [Suspect]
     Active Substance: CICLESONIDE
     Route: 055
  2. GLYCOPYRRONIUM\INDACATEROL [Suspect]
     Active Substance: GLYCOPYRRONIUM\INDACATEROL
  3. ALBUTEROL SULFATE [Suspect]
     Active Substance: ALBUTEROL SULFATE
     Route: 065

REACTIONS (3)
  - Choking [Unknown]
  - Asthma [Unknown]
  - Dyspnoea [Unknown]
